FAERS Safety Report 23943221 (Version 1)
Quarter: 2024Q2

REPORT INFORMATION
  Report Type: Spontaneous
  Country: US (occurrence: US)
  Receive Date: 20240605
  Receipt Date: 20240605
  Transmission Date: 20240716
  Serious: No
  Sender: FDA-Public Use
  Company Number: AP-2024-US-5758

PATIENT
  Age: 47 Year
  Sex: Female

DRUGS (1)
  1. CROMOLYN SODIUM [Suspect]
     Active Substance: CROMOLYN SODIUM
     Dosage: 04 AMPULES A DAY
     Route: 048

REACTIONS (2)
  - Product availability issue [Unknown]
  - Intentional product use issue [Unknown]
